FAERS Safety Report 18584774 (Version 1)
Quarter: 2020Q4

REPORT INFORMATION
  Report Type: Spontaneous
  Country: DE (occurrence: DE)
  Receive Date: 20201207
  Receipt Date: 20201207
  Transmission Date: 20210114
  Serious: Yes (Other)
  Sender: FDA-Public Use
  Company Number: DE-AXELLIA-003545

PATIENT
  Age: 93 Year
  Sex: Male
  Weight: 93 kg

DRUGS (15)
  1. ENOXAPARIN [Concomitant]
     Active Substance: ENOXAPARIN
     Dosage: DAILY DOSE: 20 MG EVERY DAYS
     Route: 058
     Dates: start: 20200829, end: 20200916
  2. MEROPENEM. [Concomitant]
     Active Substance: MEROPENEM
     Dosage: DAILY DOSE: 3 G EVERY DAYS 3 SEPARATED DOSES
     Route: 042
     Dates: start: 20200917, end: 20200919
  3. ESOMEPRAZOLE/ESOMEPRAZOLE MAGNESIUM/ESOMEPRAZOLE SODIUM [Concomitant]
     Active Substance: ESOMEPRAZOLE
     Dosage: DAILY DOSE: 20 MG MILLGRAM(S) EVERY DAYS
     Dates: start: 20200829, end: 20200925
  4. HYDROCHLOROTHIAZIDE. [Concomitant]
     Active Substance: HYDROCHLOROTHIAZIDE
     Dosage: STRENGTH-12.5 MG, 1 DF DOSAGE FORM EVERY DAYS
     Dates: start: 20200919, end: 20200925
  5. BENSERAZIDE/LEVODOPA [Concomitant]
     Active Substance: BENSERAZIDE\LEVODOPA
     Dosage: STRENGTH-25/100, 6 DF DOSAGE FORM EVERY DAYS
     Dates: start: 20200229
  6. VANCOMYCIN [Suspect]
     Active Substance: VANCOMYCIN
     Indication: INTERVERTEBRAL DISCITIS
     Route: 042
     Dates: start: 20200903, end: 20201006
  7. SUFENTANIL [Concomitant]
     Active Substance: SUFENTANIL
     Dates: start: 20200917
  8. TORASEMIDE [Concomitant]
     Active Substance: TORSEMIDE
     Dosage: 80 MG EVERY DAYS 2 SEPARATED DOSES
     Dates: start: 20200918
  9. ENOXAPARIN [Concomitant]
     Active Substance: ENOXAPARIN
     Dosage: DAILY DOSE: 40 MG MILLGRAM(S) EVERY DAYS
     Route: 058
     Dates: start: 20200917, end: 20201002
  10. BISOPROLOL [Concomitant]
     Active Substance: BISOPROLOL
     Dates: start: 20201005
  11. MOVICOL [Concomitant]
     Active Substance: POLYETHYLENE GLYCOL 3350\POTASSIUM CHLORIDE\SODIUM BICARBONATE\SODIUM CHLORIDE
  12. NOREPINEPHRINE. [Concomitant]
     Active Substance: NOREPINEPHRINE
  13. TORASEMIDE [Concomitant]
     Active Substance: TORSEMIDE
     Dosage: DAILY DOSE: 80 MG EVERY DAYS 2 SEPARATED DOSES
     Dates: start: 20200918
  14. TILIDIN [Concomitant]
     Active Substance: NALOXONE HYDROCHLORIDE\TILIDINE HYDROCHLORIDE
     Dosage: STRENGTH- 50/4, 2 DF DOSAGE FORM EVERY DAYS 2 SEPARATED DOSES
     Dates: start: 20200917, end: 20200929
  15. AMPICILLIN/SULBACTAM [Concomitant]
     Active Substance: AMPICILLIN SODIUM\SULBACTAM SODIUM
     Dosage: STRENGTH-2000/1000,1 DF DOSAGE FORM EVERY DAYS
     Route: 058
     Dates: start: 20200819, end: 20201008

REACTIONS (1)
  - Pancytopenia [Recovered/Resolved]

NARRATIVE: CASE EVENT DATE: 20200929
